FAERS Safety Report 11690955 (Version 2)
Quarter: 2015Q4

REPORT INFORMATION
  Report Type: Spontaneous
  Country: PA (occurrence: PA)
  Receive Date: 20151102
  Receipt Date: 20151106
  Transmission Date: 20160304
  Serious: Yes (Death, Other)
  Sender: FDA-Public Use
  Company Number: PHHY2015PA142756

PATIENT
  Age: 80 Year
  Sex: Male

DRUGS (1)
  1. TASIGNA [Suspect]
     Active Substance: NILOTINIB
     Indication: PRODUCT USED FOR UNKNOWN INDICATION
     Dosage: 200 MG, UNK
     Route: 065

REACTIONS (5)
  - Pulmonary embolism [Unknown]
  - Hip fracture [Unknown]
  - Hypertension [Unknown]
  - Death [Fatal]
  - Prostate cancer [Unknown]
